FAERS Safety Report 23292387 (Version 1)
Quarter: 2023Q4

REPORT INFORMATION
  Report Type: Spontaneous
  Country: US (occurrence: US)
  Receive Date: 20231213
  Receipt Date: 20231213
  Transmission Date: 20240110
  Serious: No
  Sender: FDA-Public Use
  Company Number: US-009507513-2311USA008468

PATIENT
  Sex: Male
  Weight: 112 kg

DRUGS (1)
  1. TICE BCG [Suspect]
     Active Substance: BACILLUS CALMETTE-GUERIN SUBSTRAIN TICE LIVE ANTIGEN
     Indication: Transitional cell carcinoma
     Dosage: A TOTAL OF 6 DOSES
     Route: 019

REACTIONS (1)
  - Product use in unapproved indication [Unknown]
